FAERS Safety Report 20127311 (Version 2)
Quarter: 2022Q1

REPORT INFORMATION
  Report Type: Spontaneous
  Country: CN (occurrence: CN)
  Receive Date: 20211129
  Receipt Date: 20220128
  Transmission Date: 20220424
  Serious: Yes (Other)
  Sender: FDA-Public Use
  Company Number: CN-PFIZER INC-202101596584

PATIENT
  Age: 35 Year
  Sex: Female

DRUGS (2)
  1. HEMABATE [Suspect]
     Active Substance: CARBOPROST TROMETHAMINE
     Indication: Therapeutic procedure
     Dosage: 250 UG, 1X/DAY
     Route: 030
     Dates: start: 20211027, end: 20211027
  2. OXYTOCIN [Concomitant]
     Active Substance: OXYTOCIN
     Indication: Therapeutic procedure
     Dosage: 10 IU, 1X/DAY
     Route: 041
     Dates: start: 20211027, end: 20211027

REACTIONS (3)
  - Abdominal pain upper [Recovered/Resolved]
  - Vomiting [Recovered/Resolved]
  - Diarrhoea [Recovered/Resolved]

NARRATIVE: CASE EVENT DATE: 20211027
